FAERS Safety Report 10502749 (Version 1)
Quarter: 2014Q4

REPORT INFORMATION
  Report Type: Spontaneous
  Country: JP (occurrence: None)
  Receive Date: 20141003
  Receipt Date: 20141003
  Transmission Date: 20150528
  Serious: Yes (Other)
  Sender: FDA-Public Use
  Company Number: INT_00424_2014

PATIENT
  Age: 85 Year
  Sex: Male

DRUGS (3)
  1. HYPERFRACTIONATED ACCELERATED CRANIOSPINAL IRRADIATION(HYPERFRACTIONATED ACCELERATED CRANIOSPINAL IRRADIATION) [Suspect]
     Active Substance: UNSPECIFIED INGREDIENT
     Indication: SMALL CELL LUNG CANCER
     Dosage: (TOTAL DOSE OF 45 GY OVER 3 WEEKS])
  2. ETOPOSIDE (ETOPOSIDE) [Suspect]
     Active Substance: ETOPOSIDE
     Indication: SMALL CELL LUNG CANCER
     Dosage: [ON DAYS 1 -3 OF A 28 DAY CYCLE, ONE CYCLE])
  3. CISPLATIN (CISPLATIN) (HQ SPECIALTY) [Suspect]
     Active Substance: CISPLATIN
     Indication: SMALL CELL LUNG CANCER
     Dosage: [ON DAYS 1 - 3 OF A 28 DAY CYCLE, ONE CYCLE])

REACTIONS (4)
  - Febrile neutropenia [None]
  - Toxicity to various agents [None]
  - Leukopenia [None]
  - Hyponatraemia [None]
